FAERS Safety Report 6176728-2 (Version None)
Quarter: 2009Q2

REPORT INFORMATION
  Report Type: 
  Country: None (occurrence: None)
  Receive Date: 20090501
  Receipt Date: 20090421
  Transmission Date: 20091009
  Serious: Yes (Hospitalization, Other)
  Sender: FDA-Public Use
  Company Number: NZ-ELI_LILLY_AND_COMPANY-NZ200811006294

PATIENT
  Sex: Male

DRUGS (4)
  1. HUMALOG [Suspect]
     Dosage: 23 U, EACH MORNING
     Route: 065
     Dates: start: 20081112, end: 20081125
  2. HUMALOG [Suspect]
     Dosage: 13 U, EACH EVENING
     Route: 065
     Dates: start: 20081112, end: 20081125
  3. HUMALOG MIX 75/25 [Suspect]
     Dosage: 22 U, AT BREAKFAST
     Route: 065
  4. HUMALOG MIX 75/25 [Suspect]
     Dosage: 12 U, EVENING MEAL
     Route: 065

REACTIONS (3)
  - DIABETIC KETOACIDOSIS [None]
  - DRUG DISPENSING ERROR [None]
  - HYPOGLYCAEMIA [None]
